FAERS Safety Report 25640168 (Version 2)
Quarter: 2025Q3

REPORT INFORMATION
  Report Type: Report from Study
  Country: CA (occurrence: CA)
  Receive Date: 20250804
  Receipt Date: 20250813
  Transmission Date: 20251020
  Serious: Yes (Other)
  Sender: CHIESI
  Company Number: CA-CHIESI-2024CHF00019

PATIENT
  Age: 36 Year
  Sex: Female
  Weight: 47.6 kg

DRUGS (1)
  1. DEFERIPRONE [Suspect]
     Active Substance: DEFERIPRONE
     Indication: Thalassaemia
     Dosage: 2000 MILLIGRAM, TID
     Route: 048
     Dates: start: 20090723

REACTIONS (5)
  - Pneumonia [Unknown]
  - Prescribed overdose [Unknown]
  - Tooth infection [Not Recovered/Not Resolved]
  - Malaise [Unknown]
  - Off label use [Recovered/Resolved]

NARRATIVE: CASE EVENT DATE: 20090723
